FAERS Safety Report 19831663 (Version 1)
Quarter: 2021Q3

REPORT INFORMATION
  Report Type: Spontaneous
  Country: US (occurrence: US)
  Receive Date: 20210913
  Receipt Date: 20210913
  Transmission Date: 20211014
  Serious: Yes (Hospitalization)
  Sender: FDA-Public Use
  Company Number: None

PATIENT
  Age: 40 Year
  Sex: Male

DRUGS (1)
  1. COSENTYX [Suspect]
     Active Substance: SECUKINUMAB
     Indication: PSORIASIS
     Dosage: 2 PENS Q4W SQ
     Route: 058
     Dates: start: 20201125

REACTIONS (2)
  - Nephrolithiasis [None]
  - Infection [None]

NARRATIVE: CASE EVENT DATE: 20210722
